FAERS Safety Report 5882099-9 (Version None)
Quarter: 2008Q3

REPORT INFORMATION
  Report Type: 
  Country: None (occurrence: None)
  Receive Date: 20080912
  Receipt Date: 20080722
  Transmission Date: 20090109
  Serious: No
  Sender: FDA-Public Use
  Company Number: US-ABBOTT-08P-163-0465385-00

PATIENT
  Sex: Female

DRUGS (3)
  1. HUMIRA [Suspect]
     Indication: CROHN'S DISEASE
     Route: 058
     Dates: start: 20080401, end: 20080401
  2. HUMIRA [Suspect]
     Route: 058
  3. HUMIRA [Suspect]
     Route: 058

REACTIONS (9)
  - ABSCESS [None]
  - DIARRHOEA [None]
  - DRUG DOSE OMISSION [None]
  - DYSPNOEA [None]
  - INSOMNIA [None]
  - NODULE [None]
  - PAIN [None]
  - PRURITUS [None]
  - PYREXIA [None]
